FAERS Safety Report 8457777-8 (Version None)
Quarter: 2012Q2

REPORT INFORMATION
  Report Type: 
  Country: None (occurrence: None)
  Receive Date: 20120323
  Receipt Date: 20110831
  Transmission Date: 20120825
  Serious: Yes (Other)
  Sender: FDA-Public Use
  Company Number: 163-21880-11081385

PATIENT
  Age: 68 Year
  Sex: Male
  Weight: 85.7298 kg

DRUGS (9)
  1. NIACIN [Concomitant]
  2. PENTAMIDINE ISETHIONATE [Concomitant]
  3. DIFLUCAN [Concomitant]
  4. BLOOD PRESSURE MEDICATION (ALL OTHER THERAPEUTIC PRODUCTS) [Concomitant]
  5. REVLIMID [Suspect]
     Indication: MULTIPLE MYELOMA
     Dosage: 10 MG, 1 IN 1 D, PO
     Route: 048
     Dates: start: 20110715
  6. DEXAMETHASONE TAB [Concomitant]
  7. HYZAAR [Concomitant]
  8. MULTIVITAMIN [Concomitant]
  9. CALCIUM 600 + VITAMIN D (LEKOVIT CA) [Concomitant]

REACTIONS (1)
  - VENOUS THROMBOSIS [None]
